FAERS Safety Report 8244633-3 (Version None)
Quarter: 2012Q1

REPORT INFORMATION
  Report Type: 
  Country: None (occurrence: None)
  Receive Date: 20120329
  Receipt Date: 20111114
  Transmission Date: 20120608
  Serious: No
  Sender: FDA-Public Use
  Company Number: US-MYLANLABS-2011S1023712

PATIENT
  Sex: Male

DRUGS (3)
  1. HYPERTENSION MEDICATION [Concomitant]
  2. FENTANYL-100 [Suspect]
     Indication: NEUROPATHY PERIPHERAL
     Dosage: CHANGE Q72H
     Route: 062
     Dates: start: 20110801
  3. HYDROCODONE BITARTRATE [Concomitant]
     Dosage: 10/325MG

REACTIONS (2)
  - DRUG EFFECT DECREASED [None]
  - DRY EYE [None]
